FAERS Safety Report 20989527 (Version 2)
Quarter: 2022Q3

REPORT INFORMATION
  Report Type: Spontaneous
  Country: US (occurrence: US)
  Receive Date: 20220621
  Receipt Date: 20220714
  Transmission Date: 20221026
  Serious: Yes (Hospitalization, Other)
  Sender: FDA-Public Use
  Company Number: US-INCYTE CORPORATION-2022IN005842

PATIENT

DRUGS (2)
  1. JAKAFI [Suspect]
     Active Substance: RUXOLITINIB
     Indication: Polycythaemia vera
     Dosage: 10 MILLIGRAM, BID
     Route: 048
     Dates: start: 20190906
  2. JAKAFI [Suspect]
     Active Substance: RUXOLITINIB
     Dosage: 10 MILLIGRAM, BID
     Route: 048
     Dates: start: 20190916

REACTIONS (7)
  - Intestinal obstruction [Unknown]
  - Neuropathy peripheral [Unknown]
  - Malaise [Unknown]
  - Laboratory test abnormal [Unknown]
  - White blood cell count increased [Unknown]
  - Fatigue [Unknown]
  - Infection susceptibility increased [Unknown]
